FAERS Safety Report 4731208-3 (Version None)
Quarter: 2005Q3

REPORT INFORMATION
  Report Type: 
  Country: None (occurrence: None)
  Receive Date: 20050729
  Receipt Date: 20050721
  Transmission Date: 20060218
  Serious: Yes (Hospitalization)
  Sender: FDA-Public Use
  Company Number: 05-07-1269

PATIENT
  Age: 45 Year
  Sex: Male

DRUGS (1)
  1. CLOZAPINE [Suspect]
     Indication: PSYCHOTIC DISORDER
     Dosage: 25-125MG QD ORAL
     Route: 048
     Dates: start: 20050601

REACTIONS (4)
  - DIARRHOEA [None]
  - GALLBLADDER OPERATION [None]
  - NAUSEA [None]
  - WHITE BLOOD CELL COUNT INCREASED [None]
